FAERS Safety Report 24628250 (Version 5)
Quarter: 2024Q4

REPORT INFORMATION
  Report Type: Spontaneous
  Country: PL (occurrence: PL)
  Receive Date: 20241117
  Receipt Date: 20241220
  Transmission Date: 20250114
  Serious: Yes (Life-Threatening, Hospitalization, Other)
  Sender: AUROBINDO
  Company Number: PL-LUNDBECK-DKLU4006595

PATIENT
  Age: 16 Year
  Sex: Female

DRUGS (3)
  1. ACETAMINOPHEN [Suspect]
     Active Substance: ACETAMINOPHEN
     Indication: Product used for unknown indication
     Dosage: 10 GRAM [10G (150 MG/KG B.W.)]
     Route: 065
  2. ACETAMINOPHEN [Suspect]
     Active Substance: ACETAMINOPHEN
     Dosage: 25 GRAM
     Route: 065
  3. ESCITALOPRAM [Suspect]
     Active Substance: ESCITALOPRAM OXALATE
     Indication: Product used for unknown indication
     Dosage: UNK
     Route: 065

REACTIONS (11)
  - Suicide attempt [Recovered/Resolved]
  - Nausea [Recovered/Resolved]
  - Abdominal pain upper [Recovered/Resolved]
  - Vomiting [Recovered/Resolved]
  - Drug abuse [Unknown]
  - Intentional overdose [Recovered/Resolved]
  - Abdominal pain [Unknown]
  - Toxicity to various agents [Unknown]
  - Overdose [Unknown]
  - Intentional product misuse [Unknown]
  - Product administered to patient of inappropriate age [Unknown]
